FAERS Safety Report 7216112-3 (Version None)
Quarter: 2011Q1

REPORT INFORMATION
  Report Type: 
  Country: None (occurrence: None)
  Receive Date: 20110105
  Receipt Date: 20110105
  Transmission Date: 20110831
  Serious: Yes (Hospitalization, Disabling, Congenital Anomaly)
  Sender: FDA-Public Use
  Company Number: None

PATIENT
  Age: 1 Day
  Sex: Male
  Weight: 2.7216 kg

DRUGS (1)
  1. ZOLOFT [Suspect]

REACTIONS (2)
  - MATERNAL DRUGS AFFECTING FOETUS [None]
  - PERSISTENT FOETAL CIRCULATION [None]
